FAERS Safety Report 5530782-7 (Version None)
Quarter: 2007Q4

REPORT INFORMATION
  Report Type: 
  Country: None (occurrence: None)
  Receive Date: 20071130
  Receipt Date: 20071119
  Transmission Date: 20080405
  Serious: Yes (Hospitalization)
  Sender: FDA-Public Use
  Company Number: FR-ROCHE-532651

PATIENT
  Age: 53 Year
  Sex: Female

DRUGS (3)
  1. PEGASYS [Suspect]
     Route: 065
  2. COPEGUS [Suspect]
     Route: 065
  3. PROTEASE INHIBITOR [Concomitant]
     Indication: HIV INFECTION

REACTIONS (1)
  - BRADYCARDIA [None]
